FAERS Safety Report 23245330 (Version 1)
Quarter: 2023Q4

REPORT INFORMATION
  Report Type: Spontaneous
  Country: BR (occurrence: BR)
  Receive Date: 20231130
  Receipt Date: 20231130
  Transmission Date: 20240110
  Serious: Yes (Hospitalization)
  Sender: FDA-Public Use
  Company Number: BR-AMGEN-BRASP2023211141

PATIENT
  Age: 15 Year
  Sex: Female

DRUGS (3)
  1. RITUXIMAB [Suspect]
     Active Substance: RITUXIMAB
     Indication: Thrombotic thrombocytopenic purpura
     Dosage: 500 MILLIGRAM, QWK (4 WEEKS)
     Route: 065
  2. METHYLPREDNISOLONE [Concomitant]
     Active Substance: METHYLPREDNISOLONE
     Indication: Thrombotic thrombocytopenic purpura
     Dosage: UNK
     Route: 065
  3. PREDNISONE [Concomitant]
     Active Substance: PREDNISONE
     Indication: Thrombotic thrombocytopenic purpura
     Dosage: 1 MILLIGRAM PER KILOGRAM, QD
     Route: 065

REACTIONS (5)
  - Hypervolaemia [Unknown]
  - Thrombotic microangiopathy [Unknown]
  - Glomerulonephritis membranous [Unknown]
  - Renal impairment [Recovered/Resolved]
  - Off label use [Unknown]
